FAERS Safety Report 9240208 (Version 1)
Quarter: 2013Q2

REPORT INFORMATION
  Report Type: Spontaneous
  Country: US (occurrence: None)
  Receive Date: 20130418
  Receipt Date: 20130418
  Transmission Date: 20140414
  Serious: Yes (Hospitalization)
  Sender: FDA-Public Use
  Company Number: None

PATIENT
  Age: 69 Year
  Sex: Female
  Weight: 79 kg

DRUGS (1)
  1. XARELTO, 20 MG, JANSSEN PHARM [Suspect]
     Indication: ATRIAL FIBRILLATION
     Route: 048
     Dates: start: 20130315, end: 20130414

REACTIONS (2)
  - Gastrointestinal haemorrhage [None]
  - Hypotension [None]
